FAERS Safety Report 7201455-X (Version None)
Quarter: 2010Q4

REPORT INFORMATION
  Report Type: 
  Country: None (occurrence: None)
  Receive Date: 20101227
  Receipt Date: 20101227
  Transmission Date: 20110411
  Serious: Yes (Other)
  Sender: FDA-Public Use
  Company Number: None

PATIENT
  Age: 64 Year
  Sex: Female
  Weight: 71.6683 kg

DRUGS (1)
  1. MINOCYCLINE HCL [Suspect]
     Indication: ACNE
     Dosage: 1 CAPSULE TWICE DAILY PO
     Route: 048
     Dates: start: 20101202, end: 20101212

REACTIONS (1)
  - BENIGN INTRACRANIAL HYPERTENSION [None]
